FAERS Safety Report 8760461 (Version 3)
Quarter: 2012Q4

REPORT INFORMATION
  Report Type: 
  Country: JP (occurrence: JP)
  Receive Date: 20120830
  Receipt Date: 20121008
  Transmission Date: 20130627
  Serious: Yes (Death, Other)
  Sender: FDA-Public Use
  Company Number: PHHY2012JP074352

PATIENT
  Age: 53 Year
  Sex: Male

DRUGS (1)
  1. GLIVEC [Suspect]
     Indication: DERMATOFIBROSARCOMA
     Dosage: 400 mg, daily
     Route: 048
     Dates: start: 200901

REACTIONS (4)
  - Respiratory failure [Fatal]
  - Metastases to lung [Unknown]
  - Cough [Unknown]
  - Oedema [Recovered/Resolved]
